FAERS Safety Report 15242903 (Version 1)
Quarter: 2018Q3

REPORT INFORMATION
  Report Type: Spontaneous
  Country: US (occurrence: US)
  Receive Date: 20180806
  Receipt Date: 20180806
  Transmission Date: 20181010
  Serious: No
  Sender: FDA-Public Use
  Company Number: US-ASTRAZENECA-2018SE92266

PATIENT
  Age: 20037 Day
  Sex: Female
  Weight: 105.7 kg

DRUGS (1)
  1. BYDUREON [Suspect]
     Active Substance: EXENATIDE
     Indication: BLOOD GLUCOSE ABNORMAL
     Route: 058
     Dates: start: 20180713

REACTIONS (1)
  - Administration site pain [Recovering/Resolving]

NARRATIVE: CASE EVENT DATE: 20180713
